FAERS Safety Report 16505292 (Version 1)
Quarter: 2019Q3

REPORT INFORMATION
  Report Type: Spontaneous
  Country: US (occurrence: US)
  Receive Date: 20190701
  Receipt Date: 20190701
  Transmission Date: 20191004
  Serious: No
  Sender: FDA-Public Use
  Company Number: US-GALDERMA-US19011087

PATIENT
  Age: 37 Year
  Sex: Female

DRUGS (6)
  1. PROACTIV MD DEEP CLEANSING FACE WASH [Concomitant]
     Active Substance: COSMETICS
     Indication: HORMONE THERAPY
     Route: 061
     Dates: start: 20190209, end: 20190217
  2. PROACTIV MD ADAPALENE ACNE TREATMENT [Suspect]
     Active Substance: ADAPALENE
     Indication: HORMONE THERAPY
     Dosage: 0.1%
     Route: 061
     Dates: start: 20190209, end: 20190217
  3. PROACTIV MD DAILY OIL CONTROL SPF 30 [Suspect]
     Active Substance: AVOBENZONE\OCTISALATE\OCTOCRYLENE
     Indication: HORMONE THERAPY
     Route: 061
     Dates: start: 20190209, end: 20190217
  4. PROACTIV EYE BRIGHTENING SERUM [Concomitant]
     Active Substance: COSMETICS
     Indication: HORMONE THERAPY
     Route: 061
     Dates: start: 20190209, end: 20190217
  5. PROACTIV MD BALANCING TONER [Concomitant]
     Active Substance: COSMETICS
     Indication: HORMONE THERAPY
     Route: 061
     Dates: start: 20190209, end: 20190217
  6. PROACTIV GREEN TEA MOISTURIZER [Concomitant]
     Active Substance: COSMETICS
     Indication: HORMONE THERAPY
     Route: 061
     Dates: start: 20190209, end: 20190217

REACTIONS (4)
  - Product use in unapproved indication [Recovered/Resolved]
  - Erythema [Recovered/Resolved]
  - Skin exfoliation [Recovered/Resolved]
  - Dry skin [Recovered/Resolved]

NARRATIVE: CASE EVENT DATE: 20190209
